FAERS Safety Report 6988017-4 (Version None)
Quarter: 2010Q3

REPORT INFORMATION
  Report Type: 
  Country: None (occurrence: None)
  Receive Date: 20100916
  Receipt Date: 20100908
  Transmission Date: 20110219
  Serious: Yes (Hospitalization)
  Sender: FDA-Public Use
  Company Number: A0744951A

PATIENT
  Age: 66 Year
  Sex: Female
  Weight: 68.2 kg

DRUGS (2)
  1. AVANDIA [Suspect]
     Dosage: 4MG TWICE PER DAY
     Route: 065
     Dates: start: 20020101, end: 20070101
  2. METFORMIN [Concomitant]
     Dates: start: 20050101

REACTIONS (1)
  - MYOCARDIAL INFARCTION [None]
